FAERS Safety Report 5745836-X (Version None)
Quarter: 2008Q2

REPORT INFORMATION
  Report Type: 
  Country: None (occurrence: None)
  Receive Date: 20080520
  Receipt Date: 20080508
  Transmission Date: 20081010
  Serious: Yes (Hospitalization)
  Sender: FDA-Public Use
  Company Number: DSJ-2008-04786

PATIENT
  Age: 68 Year
  Sex: Male
  Weight: 67 kg

DRUGS (8)
  1. OLMESARTAN MEDOXOMIL [Suspect]
     Dosage: 20 MG (20 MG IN 1 D), PER ORAL
     Route: 048
     Dates: start: 20071101, end: 20080416
  2. OMNIPAQUE 140 [Suspect]
     Indication: COMPUTERISED TOMOGRAM
     Dosage: 150 ML, INTRAVENOUS (NOT OTHERWISE SPECIFIED)
     Route: 042
     Dates: start: 20080410, end: 20080410
  3. OMNIPAQUE 140 [Suspect]
     Indication: RECTOSIGMOID CANCER
     Dosage: 150 ML, INTRAVENOUS (NOT OTHERWISE SPECIFIED)
     Route: 042
     Dates: start: 20080410, end: 20080410
  4. NORVASC [Concomitant]
  5. PLETAAL (CILOSTAZOL (TABLET) (CILOSTAZOL) [Concomitant]
  6. RIVOTRIL (CLONAZEPAM) (TABLET) (CLONAZEPAM) [Concomitant]
  7. ALLELOCK (OLOPATADINE HYDROCHLORIDE) [Concomitant]
  8. TAVEGLY   (CLEMASTINE FUMARATE) [Concomitant]

REACTIONS (1)
  - DRUG RASH WITH EOSINOPHILIA AND SYSTEMIC SYMPTOMS [None]
